FAERS Safety Report 7509269-8 (Version None)
Quarter: 2011Q2

REPORT INFORMATION
  Report Type: 
  Country: None (occurrence: None)
  Receive Date: 20110527
  Receipt Date: 20110516
  Transmission Date: 20111010
  Serious: Yes (Life-Threatening, Hospitalization)
  Sender: FDA-Public Use
  Company Number: RS-ROCHE-777542

PATIENT
  Sex: Male
  Weight: 80.3 kg

DRUGS (1)
  1. METHOXY POLYETHYLENE GLYCOL-EPOETIN BETA [Suspect]
     Dosage: FORM: SYRINGE. DATE OF LAST DOSE PRIOR TO SAE: 26 MAR 2011
     Route: 042
     Dates: start: 20091029, end: 20110326

REACTIONS (1)
  - ACUTE MYOCARDIAL INFARCTION [None]
